FAERS Safety Report 9307608 (Version 2)
Quarter: 2013Q2

REPORT INFORMATION
  Report Type: Spontaneous
  Country: US (occurrence: US)
  Receive Date: 20130524
  Receipt Date: 20130620
  Transmission Date: 20140414
  Serious: Yes (Other)
  Sender: FDA-Public Use
  Company Number: US-PFIZER INC-2013100572

PATIENT
  Age: 64 Year
  Sex: Female

DRUGS (2)
  1. XALKORI [Suspect]
     Indication: PLASMA CELL MYELOMA
     Dosage: 250 MG, 2X/DAY
     Route: 048
     Dates: start: 201210
  2. XALKORI [Suspect]
     Indication: NON-SMALL CELL LUNG CANCER
     Dosage: 250 MG, 1X/DAY
     Route: 048
     Dates: start: 20130327

REACTIONS (2)
  - Visual impairment [Unknown]
  - Photopsia [Unknown]
